FAERS Safety Report 13581411 (Version 2)
Quarter: 2017Q3

REPORT INFORMATION
  Report Type: Spontaneous
  Country: RU (occurrence: RU)
  Receive Date: 20170525
  Receipt Date: 20170810
  Transmission Date: 20171127
  Serious: Yes (Other)
  Sender: FDA-Public Use
  Company Number: RU-ABBVIE-17P-251-1987185-00

PATIENT
  Age: 30 Year
  Sex: Female

DRUGS (2)
  1. KLACID SR [Suspect]
     Active Substance: CLARITHROMYCIN
     Indication: BODY TEMPERATURE INCREASED
  2. KLACID SR [Suspect]
     Active Substance: CLARITHROMYCIN
     Indication: OROPHARYNGEAL PAIN
     Route: 065
     Dates: start: 201703

REACTIONS (8)
  - Pharyngeal oedema [Unknown]
  - Urticaria [Unknown]
  - Eye oedema [Unknown]
  - Dyspnoea [Unknown]
  - Abdominal discomfort [Unknown]
  - Pruritus generalised [Unknown]
  - Product quality issue [Unknown]
  - Dermatitis allergic [Not Recovered/Not Resolved]

NARRATIVE: CASE EVENT DATE: 2017
